FAERS Safety Report 24149136 (Version 1)
Quarter: 2024Q3

REPORT INFORMATION
  Report Type: Spontaneous
  Country: US (occurrence: US)
  Receive Date: 20240729
  Receipt Date: 20240729
  Transmission Date: 20241017
  Serious: No
  Sender: SANOFI AVENTIS
  Company Number: US-SA-SAC20240723001493

PATIENT
  Age: 3 Year
  Sex: Female
  Weight: 11.79 kg

DRUGS (5)
  1. DUPIXENT [Suspect]
     Active Substance: DUPILUMAB
     Indication: Dermatitis atopic
     Dosage: 200 MG, QM
     Route: 058
  2. ASPERCREME WITH LIDOCAINE [LIDOCAINE] [Concomitant]
  3. TRIAMCINOLONE ACETONIDE [Concomitant]
     Active Substance: TRIAMCINOLONE ACETONIDE
  4. ACETAMINOPHEN [Concomitant]
     Active Substance: ACETAMINOPHEN
  5. CHILDREN CLARITIN ALLERGY [Concomitant]
     Active Substance: LORATADINE

REACTIONS (4)
  - Urinary tract infection [Recovering/Resolving]
  - Injection site pain [Recovering/Resolving]
  - Dermatitis atopic [Not Recovered/Not Resolved]
  - Inappropriate schedule of product administration [Unknown]

NARRATIVE: CASE EVENT DATE: 20240601
